FAERS Safety Report 7966929-2 (Version None)
Quarter: 2011Q4

REPORT INFORMATION
  Report Type: 
  Country: None (occurrence: None)
  Receive Date: 20111209
  Receipt Date: 20111207
  Transmission Date: 20120403
  Serious: Yes (Hospitalization, Other)
  Sender: FDA-Public Use
  Company Number: JP-PFIZER INC-2011298036

PATIENT
  Age: 62 Year
  Sex: Male

DRUGS (4)
  1. ESTAZOLAM [Concomitant]
     Dosage: 2 MG, 1X/DAY
  2. ALPRAZOLAM [Suspect]
     Dosage: 2 TO 3 TABLETS/DAY, IN THE MORNING AND THE EVENING ONE TABLET EACH AND ADDITIONAL DOSE AS NEEDED
     Dates: start: 20081101
  3. DEPAS [Concomitant]
     Dosage: 0.5 MG X 3 TABLETS
  4. DIAZEPAM [Concomitant]
     Dosage: 2 MG, 1X/DAY

REACTIONS (2)
  - DYSPNOEA [None]
  - CEREBRAL INFARCTION [None]
